FAERS Safety Report 10957158 (Version 1)
Quarter: 2015Q1

REPORT INFORMATION
  Report Type: Spontaneous
  Country: US (occurrence: US)
  Receive Date: 20150326
  Receipt Date: 20150326
  Transmission Date: 20150721
  Serious: No
  Sender: FDA-Public Use
  Company Number: US-009507513-1503USA012024

PATIENT

DRUGS (1)
  1. ASMANEX [Suspect]
     Active Substance: MOMETASONE FUROATE
     Dosage: 1 TO 2 PUFFS DAILY
     Route: 055
     Dates: start: 2008

REACTIONS (3)
  - Product quality issue [Unknown]
  - Drug dose omission [Unknown]
  - No adverse event [Unknown]
